FAERS Safety Report 5526510-1 (Version None)
Quarter: 2007Q4

REPORT INFORMATION
  Report Type: 
  Country: None (occurrence: None)
  Receive Date: 20071123
  Receipt Date: 20070607
  Transmission Date: 20080405
  Serious: Yes (Other)
  Sender: FDA-Public Use
  Company Number: US-JNJFOC-20070400449

PATIENT
  Age: 89 Year
  Sex: Male
  Weight: 91.173 kg

DRUGS (12)
  1. LEVAQUIN [Suspect]
     Indication: PNEUMONIA
     Dosage: 500 MG, 1 IN 1 DAY, INTRAVENOUS
     Route: 042
     Dates: start: 20030114, end: 20030118
  2. LEVAQUIN [Suspect]
     Indication: PNEUMONIA
     Dosage: 500 MG, 1 IN 1 DAY, ORAL
     Route: 048
     Dates: start: 20030118, end: 20030130
  3. ENOXAPARIN SODIUM [Concomitant]
  4. SYNTHROID [Concomitant]
  5. DIGOXIN [Concomitant]
  6. TYLENOL (ACETAMINOPHE) UNSPECIFIED [Concomitant]
  7. SENEKOT (SENNA FRUIT) [Concomitant]
  8. TAMSULOSIN HYDROCHLORIDE (TAMSULOSIN HYDROCHLORIDE) [Concomitant]
  9. CLINDAMYCIN (CLINDAMYCIN) [Concomitant]
  10. COUMADIN [Concomitant]
  11. LOPRESSOR [Concomitant]
  12. POTASSIUM CHLORIDE [Concomitant]

REACTIONS (1)
  - TENDON RUPTURE [None]
